FAERS Safety Report 10020725 (Version 1)
Quarter: 2014Q1

REPORT INFORMATION
  Report Type: Spontaneous
  Country: US (occurrence: US)
  Receive Date: 20140319
  Receipt Date: 20140319
  Transmission Date: 20141002
  Serious: Yes (Disabling, Other)
  Sender: FDA-Public Use
  Company Number: US-AMGEN-USASP2014018739

PATIENT
  Age: 36 Year
  Sex: Male
  Weight: 158.73 kg

DRUGS (1)
  1. ENBREL [Suspect]
     Indication: PSORIASIS
     Dosage: 50 MG, QWK
     Route: 058
     Dates: start: 20140224

REACTIONS (3)
  - Injection site mass [Recovering/Resolving]
  - Injection site pain [Recovering/Resolving]
  - Drug administration error [Unknown]
